FAERS Safety Report 13343838 (Version 1)
Quarter: 2017Q1

REPORT INFORMATION
  Report Type: Spontaneous
  Country: JP (occurrence: JP)
  Receive Date: 20170316
  Receipt Date: 20170316
  Transmission Date: 20170428
  Serious: Yes (Hospitalization, Other)
  Sender: FDA-Public Use
  Company Number: JP-BRISTOL-MYERS SQUIBB COMPANY-BMS-2016-071469

PATIENT
  Age: 46 Year
  Sex: Female

DRUGS (13)
  1. EBASTEL [Concomitant]
     Active Substance: EBASTINE
     Indication: ECZEMA
     Dosage: 10 MG, QD
     Route: 048
  2. LONASEN [Concomitant]
     Active Substance: BLONANSERIN
     Indication: SCHIZOPHRENIA
     Dosage: 4 MG, QD
     Route: 048
  3. CYMBALTA [Concomitant]
     Active Substance: DULOXETINE HYDROCHLORIDE
     Indication: BRONCHITIS CHRONIC
     Dosage: 40 MG, QD
     Route: 048
  4. SINGULAIR [Concomitant]
     Active Substance: MONTELUKAST SODIUM
     Indication: ASTHMA
     Dosage: 10 MG, QD
     Route: 048
  5. CINAL [Concomitant]
     Active Substance: ASCORBIC ACID\CALCIUM PANTOTHENATE
     Indication: PRODUCT USED FOR UNKNOWN INDICATION
     Route: 048
  6. MEILAX [Concomitant]
     Active Substance: ETHYL LOFLAZEPATE
     Indication: NEUROSIS
     Dosage: 1 MG, QD
     Route: 048
  7. GASMOTIN [Concomitant]
     Active Substance: MOSAPRIDE CITRATE
     Indication: CHRONIC GASTRITIS
     Dosage: 15 MG, QD
     Route: 048
  8. MUCOSAL                            /00546002/ [Concomitant]
     Indication: BRONCHITIS CHRONIC
     Dosage: 45 MG, QD
     Route: 048
  9. METGLUCO [Suspect]
     Active Substance: METFORMIN HYDROCHLORIDE
     Indication: TYPE 2 DIABETES MELLITUS
     Dosage: 5000 MG, QD
     Route: 048
  10. DEPROMEL                           /00615202/ [Concomitant]
     Active Substance: FLUVOXAMINE MALEATE
     Indication: OBSESSIVE-COMPULSIVE DISORDER
     Dosage: 50 MG, QD
     Route: 048
  11. TAKEPRON [Concomitant]
     Active Substance: LANSOPRAZOLE
     Indication: GASTROOESOPHAGEAL REFLUX DISEASE
     Dosage: 30 MG, QD
     Route: 048
  12. EXCELASE [Concomitant]
     Active Substance: PANCRELIPASE
     Indication: CHRONIC GASTRITIS
     Dosage: 3 DF, UNK
     Route: 048
  13. VITAMEDIN                          /00176001/ [Concomitant]
     Indication: PRODUCT USED FOR UNKNOWN INDICATION
     Dosage: 2 DF, QD
     Route: 048

REACTIONS (2)
  - Lactic acidosis [Recovering/Resolving]
  - Intentional overdose [Unknown]

NARRATIVE: CASE EVENT DATE: 20160823
